FAERS Safety Report 7003443-5 (Version None)
Quarter: 2010Q3

REPORT INFORMATION
  Report Type: 
  Country: None (occurrence: None)
  Receive Date: 20100916
  Receipt Date: 20100910
  Transmission Date: 20110219
  Serious: Yes (Other)
  Sender: FDA-Public Use
  Company Number: 1000016199

PATIENT
  Age: 29 Year
  Sex: Female

DRUGS (1)
  1. LEXAPRO [Suspect]
     Indication: DEPRESSION
     Dosage: 10 MG (10 MG, 1 IN 1 D), ORAL
     Route: 048
     Dates: start: 20100301, end: 20100801

REACTIONS (3)
  - IMPAIRED DRIVING ABILITY [None]
  - MOOD SWINGS [None]
  - ROAD TRAFFIC ACCIDENT [None]
